FAERS Safety Report 6913644-X (Version None)
Quarter: 2010Q3

REPORT INFORMATION
  Report Type: 
  Country: None (occurrence: None)
  Receive Date: 20100809
  Receipt Date: 20100803
  Transmission Date: 20110219
  Serious: Yes (Hospitalization, Other)
  Sender: FDA-Public Use
  Company Number: US-JNJFOC-20100509404

PATIENT
  Sex: Female
  Weight: 108.86 kg

DRUGS (9)
  1. LEVAQUIN [Suspect]
     Indication: LOWER RESPIRATORY TRACT INFECTION
     Route: 048
  2. NAFCILLIN [Concomitant]
     Indication: STAPHYLOCOCCAL SEPSIS
     Route: 065
  3. COUMADIN [Concomitant]
     Indication: ANTICOAGULANT THERAPY
     Route: 065
  4. DIOVAN [Concomitant]
     Indication: BLOOD PRESSURE
     Route: 065
  5. PROPRANOLOL [Concomitant]
     Indication: CARDIAC DISORDER
     Route: 065
  6. METFORMIN HCL [Concomitant]
     Indication: BLOOD GLUCOSE ABNORMAL
     Route: 065
  7. LIPITOR [Concomitant]
     Indication: BLOOD CHOLESTEROL
     Route: 065
  8. HYDROCHLOROTHIAZIDE [Concomitant]
     Indication: FLUID RETENTION
     Route: 065
  9. PREDNISONE [Concomitant]
     Indication: POLYMYALGIA RHEUMATICA
     Route: 065

REACTIONS (3)
  - CHOLECYSTITIS [None]
  - FAECES DISCOLOURED [None]
  - FEELING ABNORMAL [None]
